FAERS Safety Report 4900266-5 (Version None)
Quarter: 2006Q1

REPORT INFORMATION
  Report Type: 
  Country: None (occurrence: None)
  Receive Date: 20060203
  Receipt Date: 20060125
  Transmission Date: 20060701
  Serious: Yes (Hospitalization)
  Sender: FDA-Public Use
  Company Number: JP-ROCHE-433928

PATIENT
  Age: 61 Year
  Sex: Male

DRUGS (16)
  1. MYCOPHENOLATE MOFETIL [Suspect]
     Route: 048
     Dates: start: 20041016, end: 20041107
  2. MYCOPHENOLATE MOFETIL [Suspect]
     Route: 048
     Dates: start: 20041108, end: 20041124
  3. MYCOPHENOLATE MOFETIL [Suspect]
     Route: 048
     Dates: start: 20041125, end: 20041219
  4. MYCOPHENOLATE MOFETIL [Suspect]
     Route: 048
     Dates: start: 20041220, end: 20050104
  5. MYCOPHENOLATE MOFETIL [Suspect]
     Route: 048
     Dates: start: 20050105, end: 20050106
  6. MYCOPHENOLATE MOFETIL [Suspect]
     Route: 048
     Dates: start: 20050107, end: 20050117
  7. MYCOPHENOLATE MOFETIL [Suspect]
     Route: 048
     Dates: start: 20050118, end: 20050122
  8. NEORAL [Suspect]
     Route: 048
     Dates: start: 20041016, end: 20041019
  9. NEORAL [Suspect]
     Route: 048
     Dates: start: 20041020, end: 20041031
  10. NEORAL [Suspect]
     Route: 048
     Dates: start: 20041101, end: 20041117
  11. NEORAL [Suspect]
     Route: 048
     Dates: start: 20041118, end: 20041121
  12. NEORAL [Suspect]
     Route: 048
     Dates: start: 20041122, end: 20050130
  13. NEORAL [Suspect]
     Route: 048
     Dates: start: 20050131
  14. PREDNISOLONE [Suspect]
     Route: 048
     Dates: start: 20041017
  15. BREDININ [Suspect]
     Route: 048
     Dates: start: 20050118, end: 20050122
  16. BREDININ [Suspect]
     Route: 048
     Dates: start: 20050123

REACTIONS (6)
  - ABDOMINAL HERNIA [None]
  - ABDOMINAL STRANGULATED HERNIA [None]
  - CYTOMEGALOVIRUS ANTIGEN POSITIVE [None]
  - PANCYTOPENIA [None]
  - PSEUDOMONAS INFECTION [None]
  - URINARY TRACT INFECTION [None]
